FAERS Safety Report 5135141-7 (Version None)
Quarter: 2006Q4

REPORT INFORMATION
  Report Type: 
  Country: None (occurrence: None)
  Receive Date: 20061025
  Receipt Date: 20061017
  Transmission Date: 20070319
  Serious: Yes (Hospitalization)
  Sender: FDA-Public Use
  Company Number: US-JNJFOC-20061003883

PATIENT
  Sex: Female
  Weight: 72.58 kg

DRUGS (2)
  1. REMICADE [Suspect]
     Indication: PSORIATIC ARTHROPATHY
     Route: 042
  2. ANTIBIOTICS [Concomitant]

REACTIONS (2)
  - RASH MACULAR [None]
  - SKIN SWELLING [None]
